FAERS Safety Report 4640368-4 (Version None)
Quarter: 2005Q2

REPORT INFORMATION
  Report Type: 
  Country: None (occurrence: None)
  Receive Date: 20050420
  Receipt Date: 20050103
  Transmission Date: 20051028
  Serious: No
  Sender: FDA-Public Use
  Company Number: 200400706425

PATIENT
  Age: 56 Year
  Sex: Female

DRUGS (8)
  1. LITHIUM CARBONATE [Suspect]
     Indication: DRUG USE FOR UNKNOWN INDICATION
     Dosage: 600MG PER DAY
     Route: 048
     Dates: start: 19750101
  2. RISPERDAL [Suspect]
     Indication: ANGER
     Dosage: 4MG PER DAY
     Route: 048
     Dates: start: 19960101
  3. SYNTHROID [Concomitant]
     Dosage: .125MG PER DAY
     Route: 048
  4. NOVOLOG [Concomitant]
     Indication: DIABETES MELLITUS
     Route: 058
  5. LANTUS [Concomitant]
     Indication: DIABETES MELLITUS
     Dosage: 15UD PER DAY
     Route: 058
  6. PREMARIN [Concomitant]
     Dosage: .3MG PER DAY
     Route: 048
  7. CLONOPIN [Concomitant]
     Dosage: 2MG PER DAY
     Route: 048
  8. NOVOLIN N [Concomitant]
     Indication: DIABETES MELLITUS
     Dosage: 5UD PER DAY
     Route: 058

REACTIONS (1)
  - HYPOTRICHOSIS [None]
